FAERS Safety Report 20551291 (Version 1)
Quarter: 2022Q1

REPORT INFORMATION
  Report Type: Spontaneous
  Country: US (occurrence: US)
  Receive Date: 20220304
  Receipt Date: 20220304
  Transmission Date: 20220424
  Serious: Yes (Other)
  Sender: FDA-Public Use
  Company Number: US-JNJFOC-20220259464

PATIENT
  Sex: Female

DRUGS (4)
  1. XARELTO [Suspect]
     Active Substance: RIVAROXABAN
     Indication: Atrial fibrillation
     Route: 048
  2. XARELTO [Suspect]
     Active Substance: RIVAROXABAN
     Indication: Cerebrovascular accident prophylaxis
  3. SYNTHROID [Concomitant]
     Active Substance: LEVOTHYROXINE SODIUM
  4. LASIX [Concomitant]
     Active Substance: FUROSEMIDE

REACTIONS (8)
  - Atrial fibrillation [Unknown]
  - Alopecia [Unknown]
  - Pruritus [Unknown]
  - Dyspepsia [Unknown]
  - Pain in extremity [Unknown]
  - Oedema peripheral [Unknown]
  - Gait disturbance [Unknown]
  - Arthralgia [Unknown]
